FAERS Safety Report 15991423 (Version 1)
Quarter: 2020Q3

REPORT INFORMATION
  Report Type: Report from Study
  Country: FR (occurrence: FR)
  Receive Date: 20190221
  Receipt Date: 20190221
  Transmission Date: 20201105
  Serious: Yes (Hospitalization)
  Sender: FDA-Public Use
  Company Number: FR-JNJFOC-20190125973

PATIENT
  Age: 82 Year
  Sex: Male
  Weight: 83 kg

DRUGS (5)
  1. SOTALEX [Concomitant]
     Active Substance: SOTALOL
     Route: 065
  2. DARATUMUMAB [Suspect]
     Active Substance: DARATUMUMAB
     Indication: PLASMA CELL MYELOMA
     Route: 042
     Dates: start: 20180503, end: 20181221
  3. DARATUMUMAB [Suspect]
     Active Substance: DARATUMUMAB
     Indication: PLASMA CELL MYELOMA
     Dosage: 9TH COURSE COMPLETED 26?DEC?2018
     Route: 042
     Dates: start: 20181226, end: 20181226
  4. NOVONORM [Concomitant]
     Active Substance: REPAGLINIDE
     Route: 065
  5. XARELTO [Concomitant]
     Active Substance: RIVAROXABAN
     Route: 065

REACTIONS (2)
  - Device related infection [Recovered/Resolved]
  - Lung disorder [Recovered/Resolved]

NARRATIVE: CASE EVENT DATE: 20190118
